FAERS Safety Report 5005676-6 (Version None)
Quarter: 2006Q2

REPORT INFORMATION
  Report Type: 
  Country: None (occurrence: None)
  Receive Date: 20060517
  Receipt Date: 20060517
  Transmission Date: 20061013
  Serious: Yes (Other)
  Sender: FDA-Public Use
  Company Number: None

PATIENT
  Age: 49 Year
  Sex: Male

DRUGS (2)
  1. BIOJECTOR B2000 NEEDLE-FREE INJECTION SYSTEM [Suspect]
     Indication: INJECTION SITE REACTION
     Dates: start: 20051214
  2. FUZEON [Suspect]
     Indication: HIV INFECTION
     Dosage: 90MG (1 ML)  TWICE DAILY  SUBCUT
     Route: 058
     Dates: start: 20051214

REACTIONS (4)
  - HAEMATOMA [None]
  - INCORRECT ROUTE OF DRUG ADMINISTRATION [None]
  - MOBILITY DECREASED [None]
  - MUSCLE HAEMORRHAGE [None]
